FAERS Safety Report 6370506-7 (Version None)
Quarter: 2009Q3

REPORT INFORMATION
  Report Type: 
  Country: None (occurrence: None)
  Receive Date: 20090923
  Receipt Date: 20090917
  Transmission Date: 20100115
  Serious: Yes (Other)
  Sender: FDA-Public Use
  Company Number: A0567192A

PATIENT
  Age: 63 Year
  Sex: Female

DRUGS (5)
  1. ADVAIR HFA [Suspect]
     Indication: ASTHMA
     Dosage: 1PUFF TWICE PER DAY
     Route: 055
     Dates: start: 19990101
  2. SPIRIVA [Concomitant]
  3. ACTONEL [Concomitant]
  4. MULTI-VITAMIN [Concomitant]
  5. CALCIUM [Concomitant]

REACTIONS (6)
  - CONTUSION [None]
  - INCREASED TENDENCY TO BRUISE [None]
  - NERVOUSNESS [None]
  - SKIN ATROPHY [None]
  - SKIN LACERATION [None]
  - WEIGHT INCREASED [None]
